FAERS Safety Report 14853301 (Version 3)
Quarter: 2019Q3

REPORT INFORMATION
  Report Type: Other
  Country: DK (occurrence: DK)
  Receive Date: 20180507
  Receipt Date: 20190809
  Transmission Date: 20191004
  Serious: Yes (Hospitalization)
  Sender: FDA-Public Use
  Company Number: DK-CELLTRION INC.-2018DK019542

PATIENT

DRUGS (6)
  1. REMSIMA [Suspect]
     Active Substance: INFLIXIMAB
     Indication: PSORIATIC ARTHROPATHY
     Dosage: 400 MG WEEK 0, 2, 6, +8
     Route: 042
     Dates: start: 20170831, end: 20171205
  2. INFLECTRA [Suspect]
     Active Substance: INFLIXIMAB-DYYB
     Indication: PSORIATIC ARTHROPATHY
     Dosage: 400 MG, EVERY 8 WEEK
     Route: 042
     Dates: start: 20171205, end: 20180328
  3. SULFASALAZINE DELAYED-RELEASE [Concomitant]
     Active Substance: SULFASALAZINE
     Indication: RHEUMATOID ARTHRITIS
     Dosage: UNK
     Route: 048
     Dates: start: 20151112, end: 20180322
  4. ACITRETIN. [Suspect]
     Active Substance: ACITRETIN
     Indication: PSORIASIS
     Dosage: 25 MG, DAILY
     Route: 048
     Dates: start: 20180316, end: 20180426
  5. REMSIMA [Suspect]
     Active Substance: INFLIXIMAB
     Dosage: 100 MG, EVERY 2 MONTHS
     Route: 042
     Dates: start: 20170831, end: 20180130
  6. IBUPROFEN. [Concomitant]
     Active Substance: IBUPROFEN
     Indication: ARTHRALGIA
     Dosage: 1800 MG, DAILY
     Route: 048
     Dates: start: 20161012

REACTIONS (16)
  - Skin hyperpigmentation [Unknown]
  - Inflammation [Unknown]
  - Pustular psoriasis [Not Recovered/Not Resolved]
  - Acute generalised exanthematous pustulosis [Unknown]
  - Alopecia [Not Recovered/Not Resolved]
  - Eczema [Unknown]
  - Oedema peripheral [Unknown]
  - Oral herpes [Unknown]
  - Eye swelling [Unknown]
  - Underdose [Unknown]
  - Protein urine [Unknown]
  - Swelling face [Unknown]
  - Wound [Unknown]
  - Lymphadenopathy [Unknown]
  - Erythema [Unknown]
  - Epistaxis [Unknown]

NARRATIVE: CASE EVENT DATE: 2017
